FAERS Safety Report 22343512 (Version 1)
Quarter: 2023Q2

REPORT INFORMATION
  Report Type: Other
  Country: US (occurrence: None)
  Receive Date: 20230519
  Receipt Date: 20230519
  Transmission Date: 20230721
  Serious: No
  Sender: FDA-Public Use
  Company Number: US-ROCHE-3352984

PATIENT
  Age: 52 Year
  Sex: Female

DRUGS (7)
  1. OCREVUS [Suspect]
     Active Substance: OCRELIZUMAB
     Indication: Relapsing multiple sclerosis
     Dosage: 300 MG SINGLE-USE VIAL, INFUSE 600 MG EVERY 6 MONTHS, VIAL, 30 MG/ML
     Route: 042
     Dates: start: 20221025
  2. LEVONORGESTREL [Concomitant]
     Active Substance: LEVONORGESTREL
  3. CHOLECALCIFEROL [Concomitant]
     Active Substance: CHOLECALCIFEROL
  4. VITAMIN B12 [Concomitant]
     Active Substance: CYANOCOBALAMIN
  5. ESTRADIOL [Concomitant]
     Active Substance: ESTRADIOL
  6. FLUTICASONE [Concomitant]
     Active Substance: FLUTICASONE
  7. KETOCONAZOLE [Concomitant]
     Active Substance: KETOCONAZOLE

REACTIONS (3)
  - COVID-19 [Unknown]
  - Fatigue [Unknown]
  - Pruritus [Unknown]
